FAERS Safety Report 4635054-0 (Version None)
Quarter: 2005Q2

REPORT INFORMATION
  Report Type: 
  Country: None (occurrence: None)
  Receive Date: 20050414
  Receipt Date: 20050218
  Transmission Date: 20051028
  Serious: Yes (Death)
  Sender: FDA-Public Use
  Company Number: US-ROCHE-396181

PATIENT
  Age: 43 Year
  Sex: Male

DRUGS (3)
  1. PEGASYS [Suspect]
     Indication: HEPATITIS C
     Dosage: ROUTE REPORTED AS INJECTION.
     Route: 058
     Dates: start: 20040707, end: 20050129
  2. RIBAVIRIN [Suspect]
     Indication: HEPATITIS C
     Route: 048
  3. EPIVIR [Concomitant]
     Route: 048
     Dates: start: 20040406, end: 20050129

REACTIONS (1)
  - HEPATIC FAILURE [None]
